FAERS Safety Report 24760403 (Version 3)
Quarter: 2025Q4

REPORT INFORMATION
  Report Type: Spontaneous
  Country: US (occurrence: US)
  Receive Date: 20241220
  Receipt Date: 20251003
  Transmission Date: 20260118
  Serious: No
  Sender: MERCK SHARP & DOHME LLC
  Company Number: US-009507513-2412USA004373

PATIENT
  Sex: Female
  Weight: 71.2 kg

DRUGS (16)
  1. WINREVAIR [Suspect]
     Active Substance: SOTATERCEPT-CSRK
     Indication: Product used for unknown indication
     Dates: start: 2024
  2. WINREVAIR [Suspect]
     Active Substance: SOTATERCEPT-CSRK
  3. WINREVAIR [Suspect]
     Active Substance: SOTATERCEPT-CSRK
  4. WINREVAIR [Suspect]
     Active Substance: SOTATERCEPT-CSRK
  5. ORENITRAM [Suspect]
     Active Substance: TREPROSTINIL
     Indication: Pulmonary arterial hypertension
     Route: 048
     Dates: end: 2025
  6. ORENITRAM [Suspect]
     Active Substance: TREPROSTINIL
     Indication: Pulmonary arterial hypertension
     Dosage: DOSE DESCRIPTION : 27.5 MILLIGRAM, TID; STRENGTH: 5 MG AND 2.5 MG?DAILY DOSE : 82.5 MILLIGRAM
     Route: 048
     Dates: start: 20210903
  7. ORENITRAM [Suspect]
     Active Substance: TREPROSTINIL
     Indication: Pulmonary arterial hypertension
     Route: 048
     Dates: start: 2025
  8. VITAMIN D3 [Concomitant]
     Active Substance: CHOLECALCIFEROL
     Dosage: DOSE DESCRIPTION : UNK
  9. OPSUMIT [Concomitant]
     Active Substance: MACITENTAN
     Dosage: DOSE DESCRIPTION : UNK
  10. MULTIVITAMIN [ASCORBIC ACID;CALCIUM PANTOTHENATE;CYANOCOBALAMIN;ERG... [Concomitant]
     Dosage: DOSE DESCRIPTION : UNK
     Route: 048
  11. ADCIRCA [Concomitant]
     Active Substance: TADALAFIL
     Dosage: DOSE DESCRIPTION : UNK
  12. SPIRONOLACTONE [Concomitant]
     Active Substance: SPIRONOLACTONE
     Dosage: DOSE DESCRIPTION : UNK
  13. OMEPRAZOLE [Concomitant]
     Active Substance: OMEPRAZOLE
     Dosage: DOSE DESCRIPTION : UNK
  14. ONDANSETRON HYDROCHLORIDE [Concomitant]
     Active Substance: ONDANSETRON HYDROCHLORIDE
     Dosage: DOSE DESCRIPTION : UNK
  15. WARFARIN SODIUM [Concomitant]
     Active Substance: WARFARIN SODIUM
     Dosage: DOSE DESCRIPTION : UNK
  16. TRETINOIN [Concomitant]
     Active Substance: TRETINOIN
     Dosage: DOSE DESCRIPTION : UNK

REACTIONS (2)
  - Injection site hypersensitivity [Unknown]
  - Platelet count abnormal [Unknown]

NARRATIVE: CASE EVENT DATE: 20240101
